FAERS Safety Report 19916796 (Version 2)
Quarter: 2021Q4

REPORT INFORMATION
  Report Type: Spontaneous
  Country: US (occurrence: US)
  Receive Date: 20211004
  Receipt Date: 20211013
  Transmission Date: 20220303
  Serious: Yes (Hospitalization, Other)
  Sender: FDA-Public Use
  Company Number: US-MLMSERVICE-20210922-3120087-1

PATIENT
  Age: 52 Year
  Sex: Female

DRUGS (2)
  1. BUPIVACAINE HYDROCHLORIDE [Suspect]
     Active Substance: BUPIVACAINE HYDROCHLORIDE
     Indication: Pain
     Dosage: UNK, INTRATHECAL OPIOID PUMP (MEDTRONIC), INFUSION
     Route: 037
  2. FENTANYL CITRATE [Suspect]
     Active Substance: FENTANYL CITRATE
     Indication: Pain
     Dosage: UNK, INTRATHECAL OPIOID PUMP, INFUSION
     Route: 037

REACTIONS (1)
  - Arachnoid web [Recovered/Resolved]
